FAERS Safety Report 11559157 (Version 1)
Quarter: 2015Q3

REPORT INFORMATION
  Report Type: Spontaneous
  Country: US (occurrence: None)
  Receive Date: 20150925
  Receipt Date: 20150925
  Transmission Date: 20151125
  Serious: Yes (Disabling)
  Sender: FDA-Public Use
  Company Number: None

PATIENT
  Age: 80 Year
  Sex: Female
  Weight: 61.24 kg

DRUGS (9)
  1. LORAZEPAM 1MG RANBAXY [Concomitant]
     Active Substance: LORAZEPAM
  2. ANASTROZOLE. [Suspect]
     Active Substance: ANASTROZOLE
     Indication: BREAST CANCER
     Dosage: 1 PILL
     Route: 048
     Dates: start: 20130223
  3. ALEVE 220MG [Concomitant]
  4. MELATONIN 10MG [Concomitant]
  5. CALCIUM 600 + VIT D3 800 IU [Concomitant]
  6. TRAMADOL 50MG [Concomitant]
     Active Substance: TRAMADOL
  7. ANASTROZOLE. [Suspect]
     Active Substance: ANASTROZOLE
     Indication: METASTASES TO LYMPH NODES
     Dosage: 1 PILL
     Route: 048
     Dates: start: 20130223
  8. CENTRUM SILVER MULTIVITAMIN [Concomitant]
  9. B-1 VIT 100MG [Concomitant]

REACTIONS (12)
  - Spinal pain [None]
  - Musculoskeletal chest pain [None]
  - Neuropathy peripheral [None]
  - Dizziness [None]
  - Walking aid user [None]
  - Arthralgia [None]
  - Musculoskeletal stiffness [None]
  - Insomnia [None]
  - Vein disorder [None]
  - Balance disorder [None]
  - Pain in extremity [None]
  - Erythema [None]

NARRATIVE: CASE EVENT DATE: 20150915
